FAERS Safety Report 8156278-4 (Version None)
Quarter: 2012Q1

REPORT INFORMATION
  Report Type: 
  Country: None (occurrence: None)
  Receive Date: 20120222
  Receipt Date: 20120213
  Transmission Date: 20120608
  Serious: Yes (Other)
  Sender: FDA-Public Use
  Company Number: JP-JNJFOC-20111013144

PATIENT
  Age: 69 Year
  Sex: Male

DRUGS (1)
  1. TRAMADOL HYDROCHLORIDE AND ACETAMINOPHEN [Suspect]
     Indication: PRODUCT USED FOR UNKNOWN INDICATION
     Dosage: 3 DOSES X 1 PER DAY
     Route: 048
     Dates: start: 20111025

REACTIONS (2)
  - INCORRECT DOSE ADMINISTERED [None]
  - POLLAKIURIA [None]
